FAERS Safety Report 10103707 (Version 1)
Quarter: 2014Q2

REPORT INFORMATION
  Report Type: Spontaneous
  Country: DK (occurrence: FR)
  Receive Date: 20140424
  Receipt Date: 20140424
  Transmission Date: 20141212
  Serious: Yes (Other)
  Sender: FDA-Public Use
  Company Number: FR-FRI-1000066768

PATIENT
  Age: 55 Year
  Sex: Female

DRUGS (5)
  1. ESCITALOPRAM [Suspect]
     Indication: DEPRESSION
     Dosage: 20 MG
     Route: 048
     Dates: start: 201402
  2. ESCITALOPRAM [Suspect]
     Dosage: 40 MG
     Route: 048
  3. ESCITALOPRAM [Suspect]
     Dosage: 60 MG
     Route: 048
  4. LEVOTHYROX [Concomitant]
     Dosage: 0.5 DF
     Route: 048
  5. TRANXENE [Concomitant]
     Dosage: 10 TO 15 MG

REACTIONS (3)
  - Blood creatine phosphokinase increased [Unknown]
  - Myalgia [Unknown]
  - Overdose [Unknown]
